FAERS Safety Report 7608498-2 (Version None)
Quarter: 2011Q3

REPORT INFORMATION
  Report Type: 
  Country: None (occurrence: None)
  Receive Date: 20110714
  Receipt Date: 20110629
  Transmission Date: 20111222
  Serious: Yes (Other)
  Sender: FDA-Public Use
  Company Number: PHHY2011GR58633

PATIENT
  Sex: Female

DRUGS (1)
  1. EXFORGE HCT [Suspect]

REACTIONS (1)
  - GASTROINTESTINAL DISORDER [None]
